FAERS Safety Report 7375228-1 (Version None)
Quarter: 2011Q1

REPORT INFORMATION
  Report Type: 
  Country: None (occurrence: None)
  Receive Date: 20110325
  Receipt Date: 20110314
  Transmission Date: 20110831
  Serious: Yes (Other)
  Sender: FDA-Public Use
  Company Number: US-ELI_LILLY_AND_COMPANY-US201102003146

PATIENT
  Sex: Female
  Weight: 75.283 kg

DRUGS (5)
  1. CALCIUM +VIT D [Concomitant]
     Dosage: 600 MG, 2/D
  2. DRAMAMINE [Concomitant]
     Indication: NAUSEA
     Dosage: 6.25 MG, AS NEEDED
  3. FORTEO [Suspect]
     Indication: OSTEOPOROSIS
     Dosage: 20 UG, DAILY (1/D)
     Route: 058
     Dates: start: 20101201, end: 20110211
  4. FISH OIL [Concomitant]
  5. ESTRADIOL [Concomitant]
     Dosage: 0.5 MG, DAILY (1/D)

REACTIONS (2)
  - SALIVARY GLAND CANCER [None]
  - INJECTION SITE PAIN [None]
